FAERS Safety Report 14010392 (Version 1)
Quarter: 2017Q3

REPORT INFORMATION
  Report Type: Spontaneous
  Country: US (occurrence: US)
  Receive Date: 20170926
  Receipt Date: 20170926
  Transmission Date: 20171128
  Serious: No
  Sender: FDA-Public Use
  Company Number: US-009507513-1709USA011834

PATIENT
  Sex: Female

DRUGS (1)
  1. NEXPLANON [Suspect]
     Active Substance: ETONOGESTREL
     Indication: CONTRACEPTION
     Dosage: ONE ROD EVERY THREE YEARS
     Route: 059
     Dates: start: 2015

REACTIONS (3)
  - Weight increased [Not Recovered/Not Resolved]
  - Device deployment issue [Not Recovered/Not Resolved]
  - Migration of implanted drug [Not Recovered/Not Resolved]

NARRATIVE: CASE EVENT DATE: 2015
